FAERS Safety Report 10420639 (Version 1)
Quarter: 2014Q3

REPORT INFORMATION
  Report Type: Spontaneous
  Country: US (occurrence: None)
  Receive Date: 20140829
  Receipt Date: 20140829
  Transmission Date: 20150326
  Serious: Yes (Life-Threatening, Hospitalization, Other)
  Sender: FDA-Public Use
  Company Number: None

PATIENT
  Age: 31 Year
  Sex: Male

DRUGS (1)
  1. XANAX [Suspect]
     Active Substance: ALPRAZOLAM
     Indication: ANXIETY
     Route: 048

REACTIONS (6)
  - Somnolence [None]
  - Dysarthria [None]
  - Fall [None]
  - Balance disorder [None]
  - Suicide attempt [None]
  - Impaired driving ability [None]

NARRATIVE: CASE EVENT DATE: 2012
